FAERS Safety Report 4441632-4 (Version None)
Quarter: 2004Q3

REPORT INFORMATION
  Report Type: 
  Country: None (occurrence: None)
  Receive Date: 20040907
  Receipt Date: 20040827
  Transmission Date: 20050211
  Serious: Yes (Other)
  Sender: FDA-Public Use
  Company Number: 200416480US

PATIENT
  Sex: Female

DRUGS (1)
  1. KETEK [Suspect]
     Dosage: DOSE: UNKNOWN

REACTIONS (1)
  - BLOOD PRESSURE INCREASED [None]
